FAERS Safety Report 8512429-0 (Version None)
Quarter: 2012Q3

REPORT INFORMATION
  Report Type: 
  Country: None (occurrence: None)
  Receive Date: 20120716
  Receipt Date: 20120709
  Transmission Date: 20120928
  Serious: Yes (Life-Threatening)
  Sender: FDA-Public Use
  Company Number: JP-ASTRAZENECA-2012SE47585

PATIENT
  Age: 79 Year
  Sex: Male

DRUGS (16)
  1. DOPAMINE HCL [Concomitant]
     Indication: SHOCK
     Dates: start: 20120605, end: 20120607
  2. TEGRETOL [Suspect]
     Indication: ENCEPHALITIS HERPES
     Route: 048
     Dates: start: 20120528, end: 20120611
  3. HYDROCORTISONE SODIUM SUCCINATE [Concomitant]
     Indication: ADRENAL INSUFFICIENCY
     Dates: start: 20120612, end: 20120621
  4. WARFARIN SODIUM [Concomitant]
     Indication: ATRIAL FIBRILLATION
     Route: 048
  5. ARICEPT [Concomitant]
     Indication: COGNITIVE DISORDER
     Route: 048
     Dates: end: 20120611
  6. VALTREX [Concomitant]
     Indication: HERPES ZOSTER
     Route: 048
     Dates: start: 20120525, end: 20120531
  7. MEROPENEM [Suspect]
     Indication: SEPSIS
     Route: 042
     Dates: start: 20120606, end: 20120612
  8. CORTRIL [Concomitant]
     Indication: HYPOPITUITARISM
     Route: 048
  9. ACICLOVIN [Concomitant]
     Indication: ENCEPHALITIS HERPES
     Dates: start: 20120604, end: 20120606
  10. LEVOTHYROXINE SODIUM HYDRATE [Concomitant]
     Indication: HYPOPITUITARISM
     Route: 048
  11. GAMOFA [Concomitant]
  12. MAGMITT [Concomitant]
     Indication: CONSTIPATION
     Route: 048
  13. NOREPINEPHRINE BITARTRATE [Concomitant]
     Indication: SHOCK
     Dates: start: 20120606, end: 20120607
  14. RECOMODULIN [Concomitant]
     Dates: start: 20120611, end: 20120613
  15. VANCOMYCIN HYDROCHLORIDE [Concomitant]
     Indication: SEPSIS
     Dates: start: 20120611, end: 20120614
  16. ZOSYN [Concomitant]
     Indication: SEPSIS
     Dates: start: 20120612, end: 20120616

REACTIONS (1)
  - PLATELET COUNT DECREASED [None]
